FAERS Safety Report 16012159 (Version 1)
Quarter: 2019Q1

REPORT INFORMATION
  Report Type: Spontaneous
  Country: US (occurrence: US)
  Receive Date: 20190227
  Receipt Date: 20190227
  Transmission Date: 20190418
  Serious: No
  Sender: FDA-Public Use
  Company Number: US-TEVA-2019-US-1006867

PATIENT
  Age: 76 Year
  Sex: Male

DRUGS (2)
  1. CLONAZEPAM TABLETS [Suspect]
     Active Substance: CLONAZEPAM
     Indication: DEPRESSION
  2. CLONAZEPAM TABLETS [Suspect]
     Active Substance: CLONAZEPAM
     Indication: ANXIETY
     Dosage: FULL TABLET
     Route: 065

REACTIONS (1)
  - Somnolence [Unknown]
